FAERS Safety Report 18062992 (Version 1)
Quarter: 2020Q3

REPORT INFORMATION
  Report Type: Spontaneous
  Country: US (occurrence: US)
  Receive Date: 20200723
  Receipt Date: 20200723
  Transmission Date: 20201103
  Serious: No
  Sender: FDA-Public Use
  Company Number: US-IGSA-SR10009543

PATIENT
  Sex: Female

DRUGS (30)
  1. LINZESS [Concomitant]
     Active Substance: LINACLOTIDE
  2. PREDNISONE. [Concomitant]
     Active Substance: PREDNISONE
  3. VICODIN [Concomitant]
     Active Substance: ACETAMINOPHEN\HYDROCODONE BITARTRATE
  4. DOXYCYCLINE. [Concomitant]
     Active Substance: DOXYCYCLINE
  5. BACLOFEN. [Concomitant]
     Active Substance: BACLOFEN
  6. WELCHOL [Concomitant]
     Active Substance: COLESEVELAM HYDROCHLORIDE
  7. MONISTAT 3 [Concomitant]
     Active Substance: MICONAZOLE NITRATE
  8. GAMUNEX?C [Suspect]
     Active Substance: HUMAN IMMUNOGLOBULIN G
     Indication: IMMUNODEFICIENCY
     Dosage: 16 G, Q.2WK.
     Route: 058
     Dates: start: 2014
  9. MUPIROCIN. [Concomitant]
     Active Substance: MUPIROCIN
  10. XIFAXAN [Concomitant]
     Active Substance: RIFAXIMIN
     Dosage: 550 MG, UNK
  11. BENZONATATE. [Concomitant]
     Active Substance: BENZONATATE
  12. KETOCONAZOLE. [Concomitant]
     Active Substance: KETOCONAZOLE
     Dosage: 2 %, UNK
  13. PHENAZOPYRIDINE HCL [Concomitant]
     Active Substance: PHENAZOPYRIDINE HYDROCHLORIDE
  14. OMEGA 3                            /01333901/ [Concomitant]
     Active Substance: FISH OIL\TOCOPHEROL
  15. CIPROFLOXACIN. [Concomitant]
     Active Substance: CIPROFLOXACIN
  16. FLUTICASONE PROPIONATE. [Concomitant]
     Active Substance: FLUTICASONE PROPIONATE
  17. MONTELUKAST SODIUM. [Concomitant]
     Active Substance: MONTELUKAST SODIUM
  18. HYDROXYCHLOROQUINE SULFATE. [Concomitant]
     Active Substance: HYDROXYCHLOROQUINE SULFATE
  19. GABAPENTIN. [Concomitant]
     Active Substance: GABAPENTIN
  20. LOSARTAN POTASSIUM. [Concomitant]
     Active Substance: LOSARTAN POTASSIUM
     Dosage: 100 MG, UNK
  21. IPRATROPIUM BROMIDE/ALBUTEROL SULFATE [Concomitant]
     Active Substance: ALBUTEROL SULFATE\IPRATROPIUM BROMIDE
  22. METOLAZONE. [Concomitant]
     Active Substance: METOLAZONE
  23. NEOMYCIN B SULFATE [Concomitant]
  24. DIFLUCAN [Concomitant]
     Active Substance: FLUCONAZOLE
  25. AMOXICILLIN. [Concomitant]
     Active Substance: AMOXICILLIN
  26. DEXILANT [Concomitant]
     Active Substance: DEXLANSOPRAZOLE
  27. STIOLTO RESPIMAT [Concomitant]
     Active Substance: OLODATEROL HYDROCHLORIDE\TIOTROPIUM BROMIDE MONOHYDRATE
  28. NITROFURANTOIN. [Concomitant]
     Active Substance: NITROFURANTOIN
  29. ELIQUIS [Concomitant]
     Active Substance: APIXABAN
  30. NYSTATIN. [Concomitant]
     Active Substance: NYSTATIN

REACTIONS (2)
  - Chills [Unknown]
  - Arthralgia [Unknown]
